FAERS Safety Report 17120181 (Version 1)
Quarter: 2019Q4

REPORT INFORMATION
  Report Type: Spontaneous
  Country: US (occurrence: US)
  Receive Date: 20191114
  Receipt Date: 20191114
  Transmission Date: 20200122
  Serious: No
  Sender: FDA-Public Use
  Company Number: None

PATIENT
  Age: 57 Year
  Sex: Female

DRUGS (1)
  1. GLATIRAMER 40MG PFS INJ  (12/BOX) [Suspect]
     Active Substance: GLATIRAMER
     Dosage: OTHER
     Route: 058
     Dates: start: 2018

REACTIONS (4)
  - Injection site bruising [None]
  - Injection site erythema [None]
  - Injection site swelling [None]
  - Injection site haemorrhage [None]

NARRATIVE: CASE EVENT DATE: 20191113
